FAERS Safety Report 9896088 (Version 1)
Quarter: 2014Q1

REPORT INFORMATION
  Report Type: Spontaneous
  Country: US (occurrence: US)
  Receive Date: 20140213
  Receipt Date: 20140213
  Transmission Date: 20141002
  Serious: No
  Sender: FDA-Public Use
  Company Number: US-BRISTOL-MYERS SQUIBB COMPANY-19052158

PATIENT
  Age: 48 Year
  Sex: Male
  Weight: 107.48 kg

DRUGS (6)
  1. ORENCIA [Suspect]
     Indication: RHEUMATOID ARTHRITIS
     Dosage: PREVIOUSLY 2006 TO 2012
     Dates: start: 201302, end: 201304
  2. VICODIN [Concomitant]
  3. OMEPRAZOLE [Concomitant]
  4. METHOTREXATE [Concomitant]
  5. FOLIC ACID [Concomitant]
  6. VOLTAREN [Concomitant]

REACTIONS (1)
  - Drug ineffective [Not Recovered/Not Resolved]
